FAERS Safety Report 7416940-5 (Version None)
Quarter: 2011Q2

REPORT INFORMATION
  Report Type: 
  Country: None (occurrence: None)
  Receive Date: 20110415
  Receipt Date: 20110407
  Transmission Date: 20111010
  Serious: Yes (Other)
  Sender: FDA-Public Use
  Company Number: US-NOVOPROD-326330

PATIENT
  Sex: Female

DRUGS (2)
  1. VICTOZA [Suspect]
     Dosage: 1.2 MG, QD
     Route: 058
     Dates: end: 20110301
  2. VICTOZA [Suspect]
     Indication: TYPE 2 DIABETES MELLITUS
     Dosage: .6 MG, QD
     Route: 058
     Dates: start: 20110201

REACTIONS (1)
  - PANCREATITIS [None]
